FAERS Safety Report 5748326-3 (Version None)
Quarter: 2008Q2

REPORT INFORMATION
  Report Type: 
  Country: None (occurrence: None)
  Receive Date: 20080523
  Receipt Date: 20080513
  Transmission Date: 20081010
  Serious: Yes (Disabling, Other)
  Sender: FDA-Public Use
  Company Number: US-PFIZER INC-2008019601

PATIENT
  Sex: Female
  Weight: 74.8 kg

DRUGS (2)
  1. NARDIL [Suspect]
     Indication: DEPRESSION
  2. LAMICTAL [Concomitant]

REACTIONS (12)
  - ABDOMINAL DISTENSION [None]
  - AGORAPHOBIA [None]
  - AMNESIA [None]
  - ANXIETY [None]
  - DEPRESSION [None]
  - DIZZINESS [None]
  - DRUG INEFFECTIVE [None]
  - FATIGUE [None]
  - HYPERHIDROSIS [None]
  - MUSCLE SPASMS [None]
  - NAUSEA [None]
  - TINNITUS [None]
